FAERS Safety Report 25255742 (Version 1)
Quarter: 2025Q2

REPORT INFORMATION
  Report Type: Spontaneous
  Country: US (occurrence: None)
  Receive Date: 20250429
  Receipt Date: 20250429
  Transmission Date: 20250717
  Serious: Yes (Other)
  Sender: FDA-CTU
  Company Number: None

PATIENT
  Age: 63 Year
  Sex: Female

DRUGS (15)
  1. MOUNJARO [Suspect]
     Active Substance: TIRZEPATIDE
     Indication: Weight decreased
     Route: 058
     Dates: start: 20240115, end: 20250429
  2. NPthyroid [Concomitant]
  3. bi est compounded estrogen cream [Concomitant]
  4. compounded progesterone pill [Concomitant]
  5. XANAX [Concomitant]
     Active Substance: ALPRAZOLAM
  6. BERBERINE [Concomitant]
     Active Substance: BERBERINE
  7. citrus of bergamont [Concomitant]
  8. ASPIRIN [Concomitant]
     Active Substance: ASPIRIN
  9. COENZYME Q10 [Concomitant]
     Active Substance: DIETARY SUPPLEMENT\UBIDECARENONE
  10. VITAMINS [Concomitant]
     Active Substance: VITAMINS
  11. MAGNESIUM [Concomitant]
     Active Substance: MAGNESIUM
  12. VITAMIN D3 [Concomitant]
     Active Substance: CHOLECALCIFEROL
  13. MENAQUINONE 6 [Concomitant]
     Active Substance: MENAQUINONE 6
  14. HERBALS\TURMERIC [Concomitant]
     Active Substance: HERBALS\TURMERIC
  15. pomegranate pill [Concomitant]

REACTIONS (7)
  - Burning sensation [None]
  - Skin burning sensation [None]
  - Central nervous system inflammation [None]
  - Trigeminal neuralgia [None]
  - Facial pain [None]
  - Radiculopathy [None]
  - Bruxism [None]

NARRATIVE: CASE EVENT DATE: 20250429
